FAERS Safety Report 7277193-4 (Version None)
Quarter: 2011Q1

REPORT INFORMATION
  Report Type: 
  Country: None (occurrence: None)
  Receive Date: 20110131
  Receipt Date: 20110117
  Transmission Date: 20110831
  Serious: Yes (Hospitalization)
  Sender: FDA-Public Use
  Company Number: 014024

PATIENT
  Sex: Male
  Weight: 95 kg

DRUGS (3)
  1. LACOSAMIDE [Suspect]
     Indication: PARTIAL SEIZURES
     Dosage: (200 MG BID ORAL) ; (ORAL)
     Route: 048
     Dates: end: 20100616
  2. LACOSAMIDE [Suspect]
     Indication: PARTIAL SEIZURES
     Dosage: (200 MG BID ORAL) ; (ORAL)
     Route: 048
     Dates: start: 20100616, end: 20100620
  3. LAMOTRIGINE [Concomitant]

REACTIONS (4)
  - VERTIGO [None]
  - VISION BLURRED [None]
  - ATAXIA [None]
  - DIZZINESS [None]
